FAERS Safety Report 7235850-X (Version None)
Quarter: 2011Q1

REPORT INFORMATION
  Report Type: 
  Country: None (occurrence: None)
  Receive Date: 20110120
  Receipt Date: 20110119
  Transmission Date: 20110831
  Serious: Yes (Other)
  Sender: FDA-Public Use
  Company Number: NL-ROCHE-745193

PATIENT
  Sex: Male

DRUGS (2)
  1. AVASTIN [Suspect]
     Indication: BREAST CANCER
     Route: 042
     Dates: start: 20071201
  2. AVASTIN [Suspect]
     Route: 042

REACTIONS (2)
  - NEOPLASM MALIGNANT [None]
  - EMBOLISM ARTERIAL [None]
